FAERS Safety Report 4650720-9 (Version None)
Quarter: 2005Q2

REPORT INFORMATION
  Report Type: 
  Country: None (occurrence: None)
  Receive Date: 20050429
  Receipt Date: 20050429
  Transmission Date: 20051028
  Serious: Yes (Life-Threatening, Hospitalization)
  Sender: FDA-Public Use
  Company Number: None

PATIENT
  Sex: Male
  Weight: 100 kg

DRUGS (2)
  1. TRICOR [Suspect]
     Indication: HYPERLIPIDAEMIA
     Dosage: 145MG  DAILY  ORAL
     Route: 048
     Dates: start: 20000101, end: 20050427
  2. ZOCOR [Suspect]
     Dosage: 40MG   DAILY   ORAL
     Route: 048
     Dates: start: 20050211, end: 20050427

REACTIONS (1)
  - RHABDOMYOLYSIS [None]
